FAERS Safety Report 6983703-4 (Version None)
Quarter: 2010Q3

REPORT INFORMATION
  Report Type: 
  Country: None (occurrence: None)
  Receive Date: 20100914
  Receipt Date: 20081023
  Transmission Date: 20110219
  Serious: Yes (Other)
  Sender: FDA-Public Use
  Company Number: US-WYE-H06527708

PATIENT
  Sex: Female

DRUGS (1)
  1. ADVIL LIQUI-GELS [Suspect]
     Dosage: 1/2 TABLET (FREQUENCY UNKNOWN)
     Route: 048
     Dates: start: 19880101

REACTIONS (1)
  - ANAPHYLACTIC SHOCK [None]
